FAERS Safety Report 17463918 (Version 2)
Quarter: 2020Q1

REPORT INFORMATION
  Report Type: Spontaneous
  Country: GB (occurrence: GB)
  Receive Date: 20200226
  Receipt Date: 20200305
  Transmission Date: 20200409
  Serious: Yes (Other)
  Sender: FDA-Public Use
  Company Number: GB-MYLANLABS-2020M1020671

PATIENT
  Sex: Female

DRUGS (1)
  1. SERTRALINE [Suspect]
     Active Substance: SERTRALINE HYDROCHLORIDE
     Indication: DEPRESSION
     Dosage: STRENGTH: 50 MG, ONE DAILY
     Dates: start: 20191223, end: 20191224

REACTIONS (5)
  - Loss of consciousness [Recovered/Resolved]
  - Nausea [Unknown]
  - Drug interaction [Unknown]
  - Circulatory collapse [Recovered/Resolved]
  - Vomiting [Recovered/Resolved]

NARRATIVE: CASE EVENT DATE: 20191223
